FAERS Safety Report 15815168 (Version 1)
Quarter: 2019Q1

REPORT INFORMATION
  Report Type: Spontaneous
  Country: GB (occurrence: GB)
  Receive Date: 20190112
  Receipt Date: 20190112
  Transmission Date: 20190417
  Serious: Yes (Other)
  Sender: FDA-Public Use
  Company Number: GB-ACCORD-101275

PATIENT
  Age: 61 Year
  Sex: Female
  Weight: 59 kg

DRUGS (14)
  1. OMEPRAZOLE. [Concomitant]
     Active Substance: OMEPRAZOLE
     Dates: start: 20170726
  2. DIAZEPAM. [Concomitant]
     Active Substance: DIAZEPAM
     Dosage: TAKE ONE UP TO THREE TIMES DAILY
     Dates: start: 20180122, end: 20180123
  3. BISOPROLOL [Concomitant]
     Active Substance: BISOPROLOL
     Dates: start: 20180222, end: 20180312
  4. QUINIDINE [Concomitant]
     Active Substance: QUINIDINE
     Dosage: AT BEDTIME
     Dates: start: 20171013, end: 20180122
  5. CLOPIDOGREL [Suspect]
     Active Substance: CLOPIDOGREL BISULFATE
     Indication: PRODUCT USED FOR UNKNOWN INDICATION
  6. GLYCERYL TRINITRATE [Concomitant]
     Active Substance: NITROGLYCERIN
     Indication: CHEST PAIN
     Dates: start: 20180129
  7. KLIOVANCE [Concomitant]
     Active Substance: ESTRADIOL\NORETHINDRONE ACETATE
     Dates: start: 20180213
  8. ROSUVASTATIN/ROSUVASTATIN CALCIUM [Concomitant]
     Dates: start: 20180309
  9. ATORVASTATIN [Concomitant]
     Active Substance: ATORVASTATIN
     Dosage: AT NIGHT
     Dates: start: 20180122, end: 20180301
  10. ACETYLSALICYLIC ACID [Concomitant]
     Active Substance: ASPIRIN
     Dates: start: 20180122
  11. TICAGRELOR. [Concomitant]
     Active Substance: TICAGRELOR
     Dates: start: 20180122, end: 20180313
  12. RAMIPRIL. [Concomitant]
     Active Substance: RAMIPRIL
     Dates: start: 20180122
  13. CETRABEN [Concomitant]
     Active Substance: PARAFFIN
     Dates: start: 20180301
  14. MEBEVERINE [Concomitant]
     Active Substance: MEBEVERINE
     Dosage: 20 MINS BEFORE FOOD
     Dates: start: 20180213, end: 20180313

REACTIONS (3)
  - Breast pain [Unknown]
  - Rash macular [Recovered/Resolved]
  - Swelling [Unknown]

NARRATIVE: CASE EVENT DATE: 20180320
